FAERS Safety Report 17191451 (Version 5)
Quarter: 2020Q3

REPORT INFORMATION
  Report Type: Spontaneous
  Country: US (occurrence: US)
  Receive Date: 20191223
  Receipt Date: 20200727
  Transmission Date: 20201102
  Serious: No
  Sender: FDA-Public Use
  Company Number: US-PFIZER INC-2019550634

PATIENT
  Age: 64 Year

DRUGS (2)
  1. PRISTIQ EXTENDED?RELEASE [Suspect]
     Active Substance: DESVENLAFAXINE SUCCINATE
     Dosage: 50 MG, TWO TIMES A DAY
     Route: 048
  2. PRISTIQ EXTENDED?RELEASE [Suspect]
     Active Substance: DESVENLAFAXINE SUCCINATE
     Dosage: 200 MG, ONCE DAILY (STRENGTH: 100 MG, TAKE 2 TABLETS)
     Route: 048

REACTIONS (2)
  - Anxiety [Unknown]
  - Withdrawal syndrome [Unknown]
